FAERS Safety Report 10375515 (Version 1)
Quarter: 2014Q1

REPORT INFORMATION
  Report Type: Spontaneous
  Country: US (occurrence: None)
  Receive Date: 20140306
  Receipt Date: 20140306
  Transmission Date: 20141002
  Serious: Yes (Other)
  Sender: FDA-Public Use
  Company Number: 163-21880-13041712

PATIENT
  Age: 77 Year
  Sex: Female
  Weight: 54.43 kg

DRUGS (14)
  1. REVLIMID (LENALIDOMIDE) (5 MILLIGRAM) [Suspect]
     Indication: LYMPHOMA
     Dosage: 5 MG 21 IN21 D, PO
     Route: 048
     Dates: start: 20130403, end: 20130410
  2. ATORVASTATIN [Concomitant]
  3. VITAMIN D (ERGOCALCIFEROL) [Concomitant]
  4. POTASSIUM CHLORIDE ER (POTASSIUM CHLORIDE) [Concomitant]
  5. CALCIUM [Concomitant]
  6. CELEBREX (CELECOXIB) [Concomitant]
  7. LIPITOR (ATORVASTATIN) [Concomitant]
  8. OMEPRAZOLE [Concomitant]
  9. RITUXAN (RITUXIMAB) [Concomitant]
  10. SELENIUM [Concomitant]
  11. ZINC 15 (ZINC) [Concomitant]
  12. CALCIUM 500+D (CALCIUM C3 ^STADA^) [Concomitant]
  13. TYLENOL (PARACETAMOL) [Concomitant]
  14. ALENDRONATE (ALENDRONATE SODIUM) [Concomitant]

REACTIONS (1)
  - Vision blurred [None]
